FAERS Safety Report 9057249 (Version 1)
Quarter: 2013Q1

REPORT INFORMATION
  Report Type: Report from Study
  Country: AU (occurrence: AU)
  Receive Date: 20130131
  Receipt Date: 20130131
  Transmission Date: 20140127
  Serious: Yes (Hospitalization, Other)
  Sender: FDA-Public Use
  Company Number: AU-GLAXOSMITHKLINE-B0798026A

PATIENT
  Age: 47 None
  Sex: Female

DRUGS (2)
  1. TYKERB [Suspect]
     Indication: BREAST CANCER METASTATIC
     Dosage: 250MG FIVE TIMES PER DAY
     Route: 065
     Dates: start: 20120329, end: 201210
  2. XELODA [Suspect]
     Indication: BREAST CANCER METASTATIC
     Dosage: 1500MG PER DAY
     Route: 065
     Dates: start: 20120404

REACTIONS (10)
  - Palmar-plantar erythrodysaesthesia syndrome [Recovering/Resolving]
  - Tumour excision [Unknown]
  - Radiotherapy [Unknown]
  - Metastases to spine [Unknown]
  - Diarrhoea [Recovering/Resolving]
  - Pain in extremity [Not Recovered/Not Resolved]
  - Pain in extremity [Not Recovered/Not Resolved]
  - Blister [Recovered/Resolved]
  - Drug ineffective [Unknown]
  - Gait disturbance [Unknown]
